APPROVED DRUG PRODUCT: THIORIDAZINE HYDROCHLORIDE
Active Ingredient: THIORIDAZINE HYDROCHLORIDE
Strength: 100MG
Dosage Form/Route: TABLET;ORAL
Application: A088379 | Product #001
Applicant: MUTUAL PHARMACEUTICAL CO INC
Approved: Nov 16, 1983 | RLD: No | RS: No | Type: DISCN